FAERS Safety Report 6054602-X (Version None)
Quarter: 2009Q1

REPORT INFORMATION
  Report Type: 
  Country: None (occurrence: None)
  Receive Date: 20090127
  Receipt Date: 20090112
  Transmission Date: 20090719
  Serious: Yes (Hospitalization)
  Sender: FDA-Public Use
  Company Number: FR-GENENTECH-275752

PATIENT
  Sex: Male

DRUGS (4)
  1. AVASTIN [Suspect]
     Indication: NEOPLASM MALIGNANT
     Dosage: 465 MG, UNK
     Route: 042
     Dates: start: 20081023, end: 20081023
  2. ERLOTINIB [Suspect]
     Indication: NEOPLASM MALIGNANT
     Dosage: 150 MG, UNK
     Route: 048
     Dates: start: 20080820
  3. GEMZAR [Suspect]
     Indication: DRUG USE FOR UNKNOWN INDICATION
     Dosage: 2100 MG, UNK
     Route: 042
     Dates: start: 20080820, end: 20081023
  4. CISPLATIN [Suspect]
     Indication: DRUG USE FOR UNKNOWN INDICATION
     Dosage: 170 MG, UNK
     Route: 042
     Dates: start: 20080820, end: 20081023

REACTIONS (2)
  - CONVULSION [None]
  - MONOPARESIS [None]
